FAERS Safety Report 20466769 (Version 1)
Quarter: 2022Q1

REPORT INFORMATION
  Report Type: Spontaneous
  Country: FR (occurrence: FR)
  Receive Date: 20220214
  Receipt Date: 20220214
  Transmission Date: 20220423
  Serious: Yes (Congenital Anomaly, Other)
  Sender: FDA-Public Use
  Company Number: FR-ABBVIE-22K-056-4270528-00

PATIENT
  Sex: Male

DRUGS (2)
  1. VALPROATE SODIUM [Suspect]
     Active Substance: VALPROATE SODIUM
     Indication: Maternal exposure timing unspecified
     Route: 064
     Dates: start: 20070727, end: 20080427
  2. LEUCOVORIN CALCIUM [Concomitant]
     Active Substance: LEUCOVORIN CALCIUM
     Indication: Maternal exposure timing unspecified
     Dates: start: 20070727, end: 20080427

REACTIONS (44)
  - Dysmorphism [Unknown]
  - Myopia [Unknown]
  - Ankyloglossia congenital [Unknown]
  - Brachydactyly [Unknown]
  - Pyloric stenosis [Unknown]
  - Tonic convulsion [Unknown]
  - Muscle hypertrophy [Unknown]
  - Ear infection [Unknown]
  - Astigmatism [Unknown]
  - Motor developmental delay [Unknown]
  - Speech disorder [Unknown]
  - Hypoacusis [Unknown]
  - Executive dysfunction [Unknown]
  - Dysmorphism [Unknown]
  - Labial tie [Unknown]
  - Nose deformity [Unknown]
  - Dyspraxia [Unknown]
  - Attention deficit hyperactivity disorder [Unknown]
  - Aphasia [Unknown]
  - Behaviour disorder [Unknown]
  - Vomiting projectile [Unknown]
  - Otitis media [Unknown]
  - Nasopharyngitis [Unknown]
  - Rhinotracheitis [Unknown]
  - Mouth breathing [Unknown]
  - Nasal congestion [Unknown]
  - Tympanic membrane disorder [Unknown]
  - Dark circles under eyes [Unknown]
  - Speech disorder developmental [Unknown]
  - Fine motor skill dysfunction [Unknown]
  - Language disorder [Unknown]
  - Disorientation [Unknown]
  - Language disorder [Unknown]
  - Aphasia [Unknown]
  - Attention deficit hyperactivity disorder [Unknown]
  - Aggression [Unknown]
  - Emotional disorder of childhood [Unknown]
  - Separation anxiety disorder [Unknown]
  - Cognitive disorder [Unknown]
  - Bradyphrenia [Unknown]
  - Learning disorder [Unknown]
  - Psychomotor hyperactivity [Unknown]
  - Fall [Unknown]
  - Foetal exposure during pregnancy [Unknown]
